FAERS Safety Report 5563924-8 (Version None)
Quarter: 2007Q4

REPORT INFORMATION
  Report Type: 
  Country: None (occurrence: None)
  Receive Date: 20071217
  Receipt Date: 20070913
  Transmission Date: 20080405
  Serious: No
  Sender: FDA-Public Use
  Company Number: US-ASTRAZENECA-2007UW21734

PATIENT
  Age: 77 Year
  Sex: Male
  Weight: 90.7 kg

DRUGS (6)
  1. CRESTOR [Suspect]
     Indication: BLOOD CHOLESTEROL INCREASED
     Route: 048
     Dates: start: 20040101
  2. LISISNOPRIL [Concomitant]
  3. DIGOXIN [Concomitant]
  4. VITAMIN E [Concomitant]
  5. COUMADIN [Concomitant]
  6. SLEEPING PILL [Concomitant]

REACTIONS (2)
  - HOT FLUSH [None]
  - NIGHT SWEATS [None]
